FAERS Safety Report 10994545 (Version 2)
Quarter: 2015Q2

REPORT INFORMATION
  Report Type: Spontaneous
  Country: US (occurrence: US)
  Receive Date: 20150407
  Receipt Date: 20150420
  Transmission Date: 20150821
  Serious: Yes (Hospitalization)
  Sender: FDA-Public Use
  Company Number: US-BAXTER-2015BAX017653

PATIENT
  Age: 56 Year
  Sex: Male

DRUGS (1)
  1. DIANEAL LOW CALCIUM PERITONEAL DIALYSIS SOLUTION WITH DEXTROSE [Suspect]
     Active Substance: CALCIUM CHLORIDE\DEXTROSE\MAGNESIUM CHLORIDE\SODIUM CHLORIDE\SODIUM LACTATE
     Indication: CHRONIC KIDNEY DISEASE
     Route: 033
     Dates: end: 201504

REACTIONS (5)
  - Device related sepsis [Not Recovered/Not Resolved]
  - Gastric haemorrhage [Unknown]
  - Hypertension [Unknown]
  - Dehydration [Unknown]
  - Ultrafiltration failure [Unknown]

NARRATIVE: CASE EVENT DATE: 201503
